FAERS Safety Report 23206523 (Version 1)
Quarter: 2023Q4

REPORT INFORMATION
  Report Type: Other
  Country: US (occurrence: US)
  Receive Date: 20231120
  Receipt Date: 20231120
  Transmission Date: 20240109
  Serious: No
  Sender: FDA-Public Use
  Company Number: US-UROVANT SCIENCES GMBH-202307-URV-001316

PATIENT
  Sex: Female

DRUGS (1)
  1. GEMTESA [Suspect]
     Active Substance: VIBEGRON
     Indication: Product used for unknown indication
     Dosage: 75 MG, QOD
     Route: 048

REACTIONS (5)
  - Inappropriate schedule of product administration [Unknown]
  - Dysuria [Unknown]
  - Back pain [Unknown]
  - Nasal congestion [Unknown]
  - Rhinorrhoea [Unknown]
